FAERS Safety Report 19963435 (Version 1)
Quarter: 2021Q4

REPORT INFORMATION
  Report Type: Spontaneous
  Country: US (occurrence: US)
  Receive Date: 20211017
  Receipt Date: 20211017
  Transmission Date: 20220303
  Serious: Yes (Other)
  Sender: FDA-Public Use
  Company Number: None

PATIENT
  Age: 52 Year
  Sex: Male
  Weight: 138 kg

DRUGS (1)
  1. VANCOMYCIN [Suspect]
     Active Substance: VANCOMYCIN
     Indication: Osteomyelitis
     Dosage: ?          OTHER FREQUENCY:AFTER HD;
     Route: 042
     Dates: start: 20210616, end: 20210709

REACTIONS (2)
  - Leukopenia [None]
  - Therapy cessation [None]

NARRATIVE: CASE EVENT DATE: 20210709
